FAERS Safety Report 15939413 (Version 2)
Quarter: 2019Q2

REPORT INFORMATION
  Report Type: Spontaneous
  Country: DE (occurrence: DE)
  Receive Date: 20190208
  Receipt Date: 20190401
  Transmission Date: 20190711
  Serious: Yes (Life-Threatening, Hospitalization, Other)
  Sender: FDA-Public Use
  Company Number: IND-DE-009507513-1901DEU011492

PATIENT
  Age: 77 Year
  Sex: Male
  Weight: 78 kg

DRUGS (7)
  1. PROPOFOL. [Concomitant]
     Active Substance: PROPOFOL
     Indication: GENERAL ANAESTHESIA
     Dosage: UNK
     Dates: start: 20190101, end: 20190101
  2. ARCOXIA [Suspect]
     Active Substance: ETORICOXIB
     Indication: BURSITIS
     Dosage: 60 MG Q12H (1-0-1), POST-OPERATIVE
     Route: 048
     Dates: start: 20190101, end: 20190103
  3. DELIX PLUS [Concomitant]
     Active Substance: HYDROCHLOROTHIAZIDE\RAMIPRIL
     Indication: HYPERTENSION
     Dosage: 1 DOSAGE FORM, QD (1-0-0)
  4. ACETAMINOPHEN. [Concomitant]
     Active Substance: ACETAMINOPHEN
     Indication: BURSITIS
     Dosage: 500 MG Q6H (1-1-1-1)
     Dates: start: 20190101, end: 20190104
  5. UNACID (AMPICILLIN SODIUM\SULBACTAM SODIUM) [Concomitant]
     Active Substance: AMPICILLIN SODIUM\SULBACTAM SODIUM
     Indication: BURSITIS
     Dosage: 3 GRAM, Q8H (1-0-1), THERAPY DURATION 7-10 DAYS 3 X3G
     Dates: start: 20190101, end: 20190109
  6. RAPIFEN [Concomitant]
     Indication: GENERAL ANAESTHESIA
     Dosage: UNK
     Dates: start: 20190101, end: 20190101
  7. ALLOPURINOL. [Concomitant]
     Active Substance: ALLOPURINOL
     Indication: HYPERURICAEMIA
     Dosage: 100 MG, QD (1-0-0)

REACTIONS (4)
  - Agranulocytosis [Unknown]
  - Bone marrow toxicity [Unknown]
  - Aplastic anaemia [Unknown]
  - Pancytopenia [Unknown]

NARRATIVE: CASE EVENT DATE: 201901
